FAERS Safety Report 8374960-0 (Version None)
Quarter: 2012Q2

REPORT INFORMATION
  Report Type: 
  Country: None (occurrence: None)
  Receive Date: 20120521
  Receipt Date: 20120507
  Transmission Date: 20120825
  Serious: No
  Sender: FDA-Public Use
  Company Number: US-ASTRAZENECA-2012SE29418

PATIENT
  Age: 77 Year
  Sex: Male
  Weight: 131.5 kg

DRUGS (19)
  1. XANAX [Concomitant]
     Indication: ANXIETY
  2. ACTOPLUS MET [Concomitant]
     Indication: DIABETES MELLITUS
  3. PRILOSEC [Suspect]
     Indication: BARRETT'S OESOPHAGUS
     Route: 048
  4. PRECOSE [Concomitant]
     Indication: DIABETES MELLITUS
  5. LIPITOR [Concomitant]
     Indication: BLOOD CHOLESTEROL ABNORMAL
  6. GLUCOTROL XL [Concomitant]
     Indication: DIABETES MELLITUS
  7. NEXIUM [Concomitant]
  8. SPIRONOLACTONE [Concomitant]
  9. PROZAC [Concomitant]
     Indication: DEPRESSION
  10. PRILOSEC [Suspect]
     Indication: GASTROOESOPHAGEAL REFLUX DISEASE
     Route: 048
  11. ASPIRIN [Concomitant]
  12. SYNTHROID [Concomitant]
     Indication: THYROID DISORDER
  13. ZESTRIL [Suspect]
     Indication: HYPERTENSION
     Route: 048
  14. TOPROL-XL [Suspect]
     Indication: HYPERTENSION
     Route: 048
  15. NITROLINGUAL [Concomitant]
     Indication: ANGINA PECTORIS
  16. IMDUR [Concomitant]
  17. XANAX [Concomitant]
     Indication: PANIC DISORDER
  18. JANUVIA [Concomitant]
     Indication: DIABETES MELLITUS
  19. BUTRANS HR [Concomitant]

REACTIONS (1)
  - ARTHRITIS [None]
